FAERS Safety Report 5891193-8 (Version None)
Quarter: 2008Q3

REPORT INFORMATION
  Report Type: 
  Country: None (occurrence: None)
  Receive Date: 20080922
  Receipt Date: 20080912
  Transmission Date: 20090109
  Serious: Yes (Other)
  Sender: FDA-Public Use
  Company Number: DE-WYE-G02157408

PATIENT
  Sex: Male
  Weight: 77 kg

DRUGS (1)
  1. TORISEL [Suspect]
     Indication: METASTATIC RENAL CELL CARCINOMA
     Route: 042
     Dates: start: 20080808, end: 20080822

REACTIONS (2)
  - GENERAL PHYSICAL HEALTH DETERIORATION [None]
  - STOMATITIS [None]
